FAERS Safety Report 19359354 (Version 1)
Quarter: 2021Q2

REPORT INFORMATION
  Report Type: Spontaneous
  Country: FR (occurrence: FR)
  Receive Date: 20210602
  Receipt Date: 20210602
  Transmission Date: 20210717
  Serious: Yes (Life-Threatening, Hospitalization)
  Sender: FDA-Public Use
  Company Number: FR-MYLANLABS-2021M1032367

PATIENT
  Age: 51 Year
  Sex: Female

DRUGS (2)
  1. QUETIAPINE. [Suspect]
     Active Substance: QUETIAPINE
     Indication: MENTAL DISORDER
     Dosage: 600 MILLIGRAM, QD
     Route: 048
     Dates: start: 2020
  2. THERALENE [Interacting]
     Active Substance: TRIMEPRAZINE
     Indication: MENTAL DISORDER
     Dosage: UNK
     Route: 048
     Dates: start: 2020

REACTIONS (3)
  - Faecaloma [Recovered/Resolved]
  - Intestinal ischaemia [Not Recovered/Not Resolved]
  - Drug interaction [Unknown]

NARRATIVE: CASE EVENT DATE: 20201216
